FAERS Safety Report 4335837-0 (Version None)
Quarter: 2004Q2

REPORT INFORMATION
  Report Type: 
  Country: None (occurrence: None)
  Receive Date: 20040406
  Receipt Date: 20040326
  Transmission Date: 20050107
  Serious: Yes (Hospitalization)
  Sender: FDA-Public Use
  Company Number: 2004021234

PATIENT
  Age: 83 Year
  Sex: Female
  Weight: 70 kg

DRUGS (5)
  1. AMLODIPINE [Suspect]
     Indication: ILL-DEFINED DISORDER
     Dosage: 5 MG (DAILY) ORAL
     Route: 048
  2. RILMENIDINE (RILMENIDINE) [Suspect]
     Indication: ESSENTIAL HYPERTENSION
     Dosage: 1 MG (DAILY) ORAL
     Route: 048
  3. DIOVAN HCT [Suspect]
     Indication: ILL-DEFINED DISORDER
     Dosage: ORAL
     Route: 048
  4. CLOPIDOGREL BISULFATE [Concomitant]
  5. PRAVASTATIN SODIUM [Concomitant]

REACTIONS (8)
  - AMNESIA [None]
  - DIARRHOEA [None]
  - DRUG INTERACTION [None]
  - FATIGUE [None]
  - HYPOTENSION [None]
  - LOSS OF CONSCIOUSNESS [None]
  - MALAISE [None]
  - PYELONEPHRITIS [None]
